FAERS Safety Report 11796509 (Version 1)
Quarter: 2015Q4

REPORT INFORMATION
  Report Type: Spontaneous
  Country: US (occurrence: None)
  Receive Date: 20151202
  Receipt Date: 20151202
  Transmission Date: 20160305
  Serious: Yes (Other)
  Sender: FDA-Public Use
  Company Number: None

PATIENT
  Age: 65 Year
  Sex: Male
  Weight: 101 kg

DRUGS (2)
  1. DIATRIZOATE [Suspect]
     Active Substance: DIATRIZOATE MEGLUMINE
     Indication: ORAL SURGERY
     Dates: start: 20151018, end: 20151018
  2. DIATRIZOATE [Suspect]
     Active Substance: DIATRIZOATE MEGLUMINE
     Indication: COMPUTERISED TOMOGRAM
     Dates: start: 20151018, end: 20151018

REACTIONS (6)
  - Respiratory depression [None]
  - Urticaria [None]
  - Small intestinal obstruction [None]
  - Rash [None]
  - Erythema [None]
  - Hypotension [None]

NARRATIVE: CASE EVENT DATE: 20151018
